FAERS Safety Report 16835010 (Version 2)
Quarter: 2019Q4

REPORT INFORMATION
  Report Type: Spontaneous
  Country: US (occurrence: US)
  Receive Date: 20190920
  Receipt Date: 20191018
  Transmission Date: 20200122
  Serious: Yes (Death, Other)
  Sender: FDA-Public Use
  Company Number: US-SUNOVION-2019SUN003873

PATIENT
  Sex: Male

DRUGS (1)
  1. LONHALA MAGNAIR [Suspect]
     Active Substance: GLYCOPYRROLATE
     Indication: CHRONIC OBSTRUCTIVE PULMONARY DISEASE
     Dosage: 25 ?G, BID
     Route: 055
     Dates: start: 201908, end: 201909

REACTIONS (2)
  - Product dose omission [Unknown]
  - Death [Fatal]
